FAERS Safety Report 14325026 (Version 1)
Quarter: 2017Q4

REPORT INFORMATION
  Report Type: Report from Study
  Country: US (occurrence: US)
  Receive Date: 20171226
  Receipt Date: 20171226
  Transmission Date: 20180321
  Serious: No
  Sender: FDA-Public Use
  Company Number: US-CLOVIS ONCOLOGY-CLO-2017-001111

PATIENT
  Age: 71 Year
  Sex: Female

DRUGS (2)
  1. RUBRACA [Suspect]
     Active Substance: RUCAPARIB CAMSYLATE
     Indication: OVARIAN CANCER
     Dosage: 300 MG, BID
     Route: 048
     Dates: start: 20170908, end: 201710
  2. RUBRACA [Suspect]
     Active Substance: RUCAPARIB CAMSYLATE
     Dosage: 300 MG 2 TABS TWICE DAILY
     Route: 048
     Dates: start: 201710

REACTIONS (8)
  - Dysgeusia [Unknown]
  - Underdose [Unknown]
  - Abdominal pain upper [Unknown]
  - Drug dose omission [Unknown]
  - Nausea [Unknown]
  - Pyrexia [Recovered/Resolved]
  - Fatigue [Unknown]
  - Increased appetite [Unknown]

NARRATIVE: CASE EVENT DATE: 201709
